FAERS Safety Report 4851562-1 (Version None)
Quarter: 2005Q4

REPORT INFORMATION
  Report Type: 
  Country: None (occurrence: None)
  Receive Date: 20051212
  Receipt Date: 20051129
  Transmission Date: 20060501
  Serious: Yes (Hospitalization)
  Sender: FDA-Public Use
  Company Number: BE-ROCHE-427059

PATIENT
  Age: 59 Year
  Sex: Female
  Weight: 61 kg

DRUGS (9)
  1. DACLIZUMAB [Suspect]
     Dosage: FIVE DOSES. INDUCTION, 1MG/KG BW IV AT IMPLANTATION, AND THEREAFTER AT WEEKS 2, 4, 6 AND 8.
     Route: 042
     Dates: start: 20050815, end: 20051011
  2. MYCOPHENOLATE MOFETIL [Suspect]
     Dosage: ADMINISTERED IN WEEKS 1,2,3 AND MONTHS 1,2 AND 3.
     Route: 065
  3. SIROLIMUS [Suspect]
     Route: 048
     Dates: start: 20050816
  4. PREDNISOLONE [Suspect]
     Dosage: ADMINISTERED IN WEEKS 1,2,3 AND MONTHS 1,2 AND 3.
     Route: 065
  5. BETA BLOCKER [Concomitant]
     Dosage: ADMINISTERED ON DAY 0, WEEKS1,2,3, MONTHS 1,2 AND 3.
  6. CALCIUM ANTAGONIST [Concomitant]
     Dosage: ADMINISTERED ON DAY 0, WEEKS 1,2,3 AND MONTHS 1 AND 2.
  7. ACE INHIBITOR [Concomitant]
     Dosage: ACE/ANG 2 INHIBITOR ADMINISTERED ON DAY 0.
  8. DIURETIC [Concomitant]
     Dosage: ADMINISTERED ON DAY 0 AND WEEK 1.
  9. STATIN [Concomitant]
     Dosage: ADMINISTERED ON DAY 0, WEEKS 1,2,3, MONTHS 1,2 AND 3.

REACTIONS (10)
  - BACK PAIN [None]
  - CYTOMEGALOVIRUS INFECTION [None]
  - GRAFT DYSFUNCTION [None]
  - HYPOKALAEMIA [None]
  - HYPOXIA [None]
  - KIDNEY FIBROSIS [None]
  - PALLOR [None]
  - RENAL TUBULAR NECROSIS [None]
  - RESPIRATORY ALKALOSIS [None]
  - TACHYPNOEA [None]
